FAERS Safety Report 5470651-4 (Version None)
Quarter: 2007Q3

REPORT INFORMATION
  Report Type: 
  Country: None (occurrence: None)
  Receive Date: 20070928
  Receipt Date: 20070917
  Transmission Date: 20080115
  Serious: Yes (Death)
  Sender: FDA-Public Use
  Company Number: CN-TYCO HEALTHCARE/MALLINCKRODT-T200701117

PATIENT

DRUGS (1)
  1. OPTIRAY 300 [Suspect]
     Indication: ANGIOGRAM
     Dosage: 50 ML, SINGLE
     Dates: start: 20070905, end: 20070905

REACTIONS (1)
  - DEATH [None]
